FAERS Safety Report 9536513 (Version 3)
Quarter: 2013Q4

REPORT INFORMATION
  Report Type: Spontaneous
  Country: US (occurrence: US)
  Receive Date: 20130919
  Receipt Date: 20131028
  Transmission Date: 20140711
  Serious: Yes (Death)
  Sender: FDA-Public Use
  Company Number: US-ASTELLAS-2013US009753

PATIENT
  Sex: Male

DRUGS (1)
  1. TARCEVA [Suspect]
     Indication: LUNG NEOPLASM MALIGNANT
     Dosage: 5 DF, UID/QD
     Route: 065
     Dates: start: 20130905, end: 20130910

REACTIONS (2)
  - Pneumonia [Fatal]
  - Bronchioloalveolar carcinoma [Fatal]
